FAERS Safety Report 22389541 (Version 12)
Quarter: 2024Q3

REPORT INFORMATION
  Report Type: Report from Study
  Country: US (occurrence: US)
  Receive Date: 20230531
  Receipt Date: 20240816
  Transmission Date: 20241016
  Serious: Yes (Other)
  Sender: NOVARTIS
  Company Number: US-002147023-NVSC2023US120858

PATIENT
  Age: 56 Year
  Sex: Female

DRUGS (1)
  1. KESIMPTA [Suspect]
     Active Substance: OFATUMUMAB
     Indication: Product used for unknown indication
     Dosage: 20 MG, QMO
     Route: 058
     Dates: start: 20230516

REACTIONS (19)
  - Lumbar vertebral fracture [Unknown]
  - Muscle spasms [Unknown]
  - Asthenia [Unknown]
  - Dermatitis contact [Unknown]
  - Hypersomnia [Unknown]
  - Balance disorder [Unknown]
  - Injection site pain [Recovering/Resolving]
  - Incorrect dose administered [Unknown]
  - Back pain [Unknown]
  - Arthritis [Unknown]
  - Nerve compression [Unknown]
  - Accidental exposure to product [Unknown]
  - Injection site haemorrhage [Recovering/Resolving]
  - Abdominal pain upper [Recovering/Resolving]
  - Dysstasia [Unknown]
  - Gait disturbance [Unknown]
  - Spondylolisthesis [Unknown]
  - Spondylolysis [Unknown]
  - Exposure to toxic agent [Unknown]

NARRATIVE: CASE EVENT DATE: 20230523
